FAERS Safety Report 24603271 (Version 1)
Quarter: 2024Q4

REPORT INFORMATION
  Report Type: Spontaneous
  Country: JP (occurrence: JP)
  Receive Date: 20241111
  Receipt Date: 20241111
  Transmission Date: 20250115
  Serious: Yes (Hospitalization)
  Sender: Haleon PLC
  Company Number: JP-HALEON-2206921

PATIENT
  Sex: Male

DRUGS (3)
  1. NICOTINELL [Suspect]
     Active Substance: NICOTINE
     Indication: Smoking cessation therapy
     Dosage: TIME INTERVAL: AS NECESSARY
     Route: 062
     Dates: start: 2023
  2. NICOTINELL [Suspect]
     Active Substance: NICOTINE
  3. NICOTINELL [Suspect]
     Active Substance: NICOTINE

REACTIONS (10)
  - Sensation of foreign body [Recovering/Resolving]
  - Dysphonia [Recovering/Resolving]
  - Application site erythema [Unknown]
  - Application site pruritus [Unknown]
  - Therapeutic product effect incomplete [Unknown]
  - Oedema peripheral [Recovering/Resolving]
  - Pain in extremity [Recovering/Resolving]
  - Urticaria [Recovering/Resolving]
  - Product use issue [Unknown]
  - Erythema [Unknown]
